FAERS Safety Report 7454972-1 (Version None)
Quarter: 2011Q2

REPORT INFORMATION
  Report Type: 
  Country: None (occurrence: None)
  Receive Date: 20110503
  Receipt Date: 20110428
  Transmission Date: 20111010
  Serious: Yes (Death, Hospitalization)
  Sender: FDA-Public Use
  Company Number: DK-BRISTOL-MYERS SQUIBB COMPANY-15697469

PATIENT
  Age: 46 Year
  Sex: Female

DRUGS (2)
  1. CARBOPLATIN [Suspect]
     Indication: SMALL CELL LUNG CANCER STAGE UNSPECIFIED
     Dosage: 1DF=5AUC.DOSE REDUCED
  2. ETOPOSIDE [Suspect]
     Indication: SMALL CELL LUNG CANCER STAGE UNSPECIFIED
     Dosage: DOSE REDUCED

REACTIONS (5)
  - SUPERIOR VENA CAVA SYNDROME [None]
  - LEUKOPENIA [None]
  - NEUTROPENIC COLITIS [None]
  - THROMBOCYTOPENIA [None]
  - BLOOD SODIUM DECREASED [None]
